FAERS Safety Report 18352002 (Version 2)
Quarter: 2020Q4

REPORT INFORMATION
  Report Type: Report from Study
  Country: DE (occurrence: DE)
  Receive Date: 20201007
  Receipt Date: 20201016
  Transmission Date: 20210114
  Serious: Yes (Other)
  Sender: FDA-Public Use
  Company Number: DE-BRISTOL-MYERS SQUIBB COMPANY-BMS-2020-079708

PATIENT
  Age: 46 Year
  Sex: Female

DRUGS (4)
  1. DABRAFENIB [Suspect]
     Active Substance: DABRAFENIB
     Indication: MALIGNANT MELANOMA
     Dosage: UNK
     Route: 065
     Dates: start: 201911, end: 201912
  2. PEMBROLIZUMAB. [Suspect]
     Active Substance: PEMBROLIZUMAB
     Indication: MALIGNANT MELANOMA
     Dosage: UNK
     Route: 065
     Dates: start: 201811, end: 201911
  3. TRAMETINIB [Suspect]
     Active Substance: TRAMETINIB
     Indication: MALIGNANT MELANOMA
     Dosage: UNK
     Route: 065
     Dates: start: 201911, end: 201912
  4. IPILIMUMAB [Suspect]
     Active Substance: IPILIMUMAB
     Indication: MALIGNANT MELANOMA
     Dosage: UNK
     Route: 065
     Dates: start: 201811, end: 201911

REACTIONS (8)
  - Malignant neoplasm progression [Unknown]
  - Adrenocortical insufficiency acute [Unknown]
  - Sinus bradycardia [Unknown]
  - Immune-mediated hepatitis [Recovered/Resolved]
  - Pyrexia [Unknown]
  - Thrombocytopenia [Unknown]
  - Hypophysitis [Unknown]
  - Chronic gastritis [Unknown]

NARRATIVE: CASE EVENT DATE: 2019
